FAERS Safety Report 11257623 (Version 1)
Quarter: 2015Q3

REPORT INFORMATION
  Report Type: Spontaneous
  Country: TR (occurrence: TR)
  Receive Date: 20150710
  Receipt Date: 20150710
  Transmission Date: 20151125
  Serious: Yes (Other)
  Sender: FDA-Public Use
  Company Number: TR-AMGEN-TURSP2015067508

PATIENT
  Age: 53 Year
  Sex: Female

DRUGS (2)
  1. PREDNOL                            /00049601/ [Concomitant]
     Active Substance: METHYLPREDNISOLONE
  2. ENBREL [Suspect]
     Active Substance: ETANERCEPT
     Indication: RHEUMATOID ARTHRITIS
     Dosage: 25 MG, 2X/WEEK
     Route: 058
     Dates: start: 20140514, end: 201409

REACTIONS (2)
  - Osteitis [Recovered/Resolved with Sequelae]
  - Nail discolouration [Unknown]

NARRATIVE: CASE EVENT DATE: 201409
